FAERS Safety Report 17139645 (Version 2)
Quarter: 2023Q1

REPORT INFORMATION
  Report Type: Spontaneous
  Country: DE (occurrence: DE)
  Receive Date: 20191211
  Receipt Date: 20230201
  Transmission Date: 20230417
  Serious: Yes (Life-Threatening, Hospitalization)
  Sender: FDA-Public Use
  Company Number: DE-ADRED-02533-01

PATIENT
  Age: 40 Year
  Sex: Female
  Weight: 55 kg

DRUGS (5)
  1. IBUPROFEN [Suspect]
     Active Substance: IBUPROFEN
     Indication: Product used for unknown indication
     Dosage: 600 MILLIGRAM,2X/D, BEDARFSMEDIKATION BEI INFEKT, TABLETTEN
     Route: 048
  2. CAMPHOR [Suspect]
     Active Substance: CAMPHOR
     Indication: Product used for unknown indication
     Dosage: UNK (2X / D, REQUIRED MEDICATION FOR INFECTION, JUICE)
     Route: 048
  3. CAMPHOR [Suspect]
     Active Substance: CAMPHOR
     Dosage: UNK (AT NIGHT, EMERGENCY MEDICATION FOR INFECTION, JUICE)
     Route: 048
  4. ACETAMINOPHEN\DEXTROMETHORPHAN HYDROBROMIDE\DOXYLAMINE SUCCINATE\EPHED [Suspect]
     Active Substance: ACETAMINOPHEN\DEXTROMETHORPHAN HYDROBROMIDE\DOXYLAMINE SUCCINATE\EPHEDRINE
     Indication: Product used for unknown indication
     Dosage: UNK, (NK NK, ZUR NACHT, BEDARFSMEDIKATION BEI INFEKT, SAFT)
     Route: 048
  5. CODEINE [Concomitant]
     Active Substance: CODEINE
     Indication: Product used for unknown indication
     Dosage: 20 GTT DROPS IF NECESSARY
     Route: 048

REACTIONS (3)
  - Jaundice [Unknown]
  - Oedema peripheral [Unknown]
  - Product monitoring error [Unknown]
